FAERS Safety Report 12758777 (Version 2)
Quarter: 2016Q3

REPORT INFORMATION
  Report Type: Spontaneous
  Country: US (occurrence: US)
  Receive Date: 20160919
  Receipt Date: 20160921
  Transmission Date: 20161109
  Serious: Yes (Hospitalization)
  Sender: FDA-Public Use
  Company Number: US-PFIZER INC-2016436373

PATIENT
  Age: 75 Year
  Sex: Female
  Weight: 77.11 kg

DRUGS (5)
  1. TIKOSYN [Suspect]
     Active Substance: DOFETILIDE
     Dosage: 500 UG, 2X/DAY
  2. DIGOXIN. [Concomitant]
     Active Substance: DIGOXIN
     Indication: PROPHYLAXIS
     Dosage: 0.25 MG, 1X/DAY
  3. WARFARIN [Suspect]
     Active Substance: WARFARIN
     Indication: ANTICOAGULANT THERAPY
  4. POTASSIUM CL [Concomitant]
     Active Substance: POTASSIUM CHLORIDE
     Dosage: 10 MG, UNK
  5. OMEPRAZOLE. [Concomitant]
     Active Substance: OMEPRAZOLE
     Dosage: 20 MG, UNK

REACTIONS (4)
  - Urinary tract infection [Not Recovered/Not Resolved]
  - Dehydration [Unknown]
  - Heart rate abnormal [Unknown]
  - Renal failure [Unknown]
